APPROVED DRUG PRODUCT: OLANZAPINE
Active Ingredient: OLANZAPINE
Strength: 10MG/VIAL
Dosage Form/Route: POWDER;INTRAMUSCULAR
Application: A219048 | Product #001 | TE Code: AP
Applicant: OMNIVIUM PHARMACEUTICALS LLC
Approved: Jan 23, 2026 | RLD: No | RS: No | Type: RX